FAERS Safety Report 21751356 (Version 2)
Quarter: 2023Q1

REPORT INFORMATION
  Report Type: Report from Study
  Country: US (occurrence: US)
  Receive Date: 20221220
  Receipt Date: 20230207
  Transmission Date: 20230417
  Serious: Yes (Other)
  Sender: FDA-Public Use
  Company Number: US-ABBVIE-4242937

PATIENT
  Age: 82 Year
  Sex: Female

DRUGS (1)
  1. CREON [Suspect]
     Active Substance: PANCRELIPASE AMYLASE\PANCRELIPASE LIPASE\PANCRELIPASE PROTEASE
     Indication: Product used for unknown indication
     Dosage: TAKE TWO CAPSULES BY MOUTH WITH MEALS AND TAKE 1 CAPSULE BY MOUTH WITH SNACK
     Route: 048

REACTIONS (2)
  - Facial operation [Unknown]
  - Neuralgia [Recovered/Resolved]

NARRATIVE: CASE EVENT DATE: 20220816
